FAERS Safety Report 8836693 (Version 2)
Quarter: 2012Q4

REPORT INFORMATION
  Report Type: Spontaneous
  Country: US (occurrence: None)
  Receive Date: 20121010
  Receipt Date: 20121114
  Transmission Date: 20130627
  Serious: Yes (Other)
  Sender: FDA-Public Use
  Company Number: 2012S1001166

PATIENT
  Age: 62 Year
  Sex: Male

DRUGS (7)
  1. LIVALO [Suspect]
     Indication: CHOLESTEROL HIGH
     Route: 048
     Dates: start: 201207, end: 201207
  2. LIVALO [Suspect]
     Indication: CHOLESTEROL HIGH
     Route: 048
     Dates: start: 201207, end: 20120926
  3. LIVALO [Suspect]
     Indication: CHOLESTEROL HIGH
     Route: 048
     Dates: start: 20120926
  4. LISINOPRIL [Concomitant]
  5. COREG [Concomitant]
  6. MULTIVITAMIN /02371501/ [Concomitant]
  7. ASPIRIN [Concomitant]

REACTIONS (4)
  - Frequent bowel movements [None]
  - Haematochezia [None]
  - Muscle spasms [None]
  - Diarrhoea [None]
